FAERS Safety Report 15569719 (Version 1)
Quarter: 2018Q4

REPORT INFORMATION
  Report Type: Spontaneous
  Country: US (occurrence: US)
  Receive Date: 20181031
  Receipt Date: 20181031
  Transmission Date: 20190205
  Serious: No
  Sender: FDA-Public Use
  Company Number: US-PFIZER INC-2018433756

PATIENT
  Age: 47 Year
  Sex: Female

DRUGS (1)
  1. GENOTROPIN MQ [Suspect]
     Active Substance: SOMATROPIN
     Dosage: 0.2 MG, DAILY

REACTIONS (8)
  - Blood triglycerides increased [Unknown]
  - Blood albumin decreased [Unknown]
  - High density lipoprotein decreased [Unknown]
  - Blood sodium decreased [Unknown]
  - Anion gap increased [Unknown]
  - Blood glucose increased [Unknown]
  - Protein total decreased [Unknown]
  - Platelet count increased [Unknown]

NARRATIVE: CASE EVENT DATE: 20180125
